FAERS Safety Report 11351575 (Version 1)
Quarter: 2015Q3

REPORT INFORMATION
  Report Type: Spontaneous
  Country: US (occurrence: US)
  Receive Date: 20150807
  Receipt Date: 20150807
  Transmission Date: 20151125
  Serious: No
  Sender: FDA-Public Use
  Company Number: US-JNJFOC-20141017321

PATIENT
  Age: 76 Year
  Sex: Female
  Weight: 65.77 kg

DRUGS (4)
  1. WOMENS ROGAINE [Suspect]
     Active Substance: MINOXIDIL
     Route: 061
  2. WOMENS ROGAINE [Suspect]
     Active Substance: MINOXIDIL
     Indication: HAIR GROWTH ABNORMAL
     Dosage: INTERVAL - MANY YEARS
     Route: 061
  3. XANAX [Concomitant]
     Active Substance: ALPRAZOLAM
     Dosage: INTERVAL - MANY YEARS
     Route: 065
  4. UNKNOWN MEDICATION [Concomitant]
     Active Substance: UNSPECIFIED INGREDIENT
     Indication: CARDIAC DISORDER
     Dosage: INTERVAL - MANY YEARS
     Route: 065

REACTIONS (1)
  - Hair colour changes [Not Recovered/Not Resolved]
